FAERS Safety Report 8276210-2 (Version None)
Quarter: 2012Q2

REPORT INFORMATION
  Report Type: 
  Country: None (occurrence: None)
  Receive Date: 20120412
  Receipt Date: 20120402
  Transmission Date: 20120825
  Serious: Yes (Other)
  Sender: FDA-Public Use
  Company Number: US-GENZYME-POMP-1002143

PATIENT
  Sex: Male
  Weight: 105 kg

DRUGS (1)
  1. LUMIZYME [Suspect]
     Indication: GLYCOGEN STORAGE DISEASE TYPE II
     Dosage: 2100 MG, Q2W
     Route: 042
     Dates: start: 20110701

REACTIONS (1)
  - TRACHEOSTOMY INFECTION [None]
